FAERS Safety Report 7561149-8 (Version None)
Quarter: 2011Q2

REPORT INFORMATION
  Report Type: 
  Country: None (occurrence: None)
  Receive Date: 20110620
  Receipt Date: 20110620
  Transmission Date: 20111010
  Serious: Yes (Hospitalization)
  Sender: FDA-Public Use
  Company Number: None

PATIENT
  Sex: Male
  Weight: 5.9 kg

DRUGS (2)
  1. ETOPOSIDE [Suspect]
     Dosage: 72 MG
  2. CARBOPLATIN [Suspect]
     Dosage: 110 MG

REACTIONS (9)
  - CULTURE POSITIVE [None]
  - AGITATION [None]
  - STAPHYLOCOCCAL INFECTION [None]
  - HYPERTENSION [None]
  - WOUND INFECTION [None]
  - HYPOTENSION [None]
  - NEUTROPHIL COUNT DECREASED [None]
  - WHITE BLOOD CELL COUNT DECREASED [None]
  - PLATELET COUNT DECREASED [None]
